FAERS Safety Report 6473046-X (Version None)
Quarter: 2009Q4

REPORT INFORMATION
  Report Type: 
  Country: None (occurrence: None)
  Receive Date: 20091124
  Receipt Date: 20091113
  Transmission Date: 20100525
  Serious: Yes (Hospitalization)
  Sender: FDA-Public Use
  Company Number: THYM-1001177

PATIENT
  Age: 64 Year
  Sex: Male

DRUGS (40)
  1. THYMOGLOBULIN [Suspect]
     Indication: BONE MARROW TRANSPLANT
     Dosage: 1.5 MG/KG, QD, INTRAVEOUS
     Route: 042
     Dates: start: 20090803, end: 20090807
  2. THYMOGLOBULIN [Suspect]
  3. THYMOGLOBULIN [Suspect]
  4. CLOFARABINE (CLOFARABINE) [Concomitant]
  5. ACETAMINOPHEN [Concomitant]
  6. DIPHENHYRAMINE (DIPHENHYDRAMINE) [Concomitant]
  7. MEPERISINE (PETHIDINE) [Concomitant]
  8. ALUMINUM HYDROXIDE SUSPENSION [Concomitant]
  9. LOPERAMIDE (LOPERAMIDE) [Concomitant]
  10. MULTIVITAMIN (VITAINS NOS) [Concomitant]
  11. FOLIC ACID [Concomitant]
  12. ONDANSETRON [Concomitant]
  13. ACYCLOVIR [Concomitant]
  14. FLUCONAZOLE [Concomitant]
  15. HYDROCERIN (PARAFFIN, LIQUID, WOOL ALCHOLA) [Concomitant]
  16. FLIGRASTIM (FILGRASTIM) [Concomitant]
  17. CAPHOSOL [Concomitant]
  18. MYCOPHENOLATE MOFETIL [Concomitant]
  19. LORAZEPAM [Concomitant]
  20. SENNA (SENNA ALEXANDRIA) [Concomitant]
  21. LEVOTHYROXINE SODIUM [Concomitant]
  22. TIMOLOL MALEATE [Concomitant]
  23. LIDOCAINE VISCOUS (LIDOCAINE HYDROCHLORIDE) [Concomitant]
  24. OXYCODONE HCL [Concomitant]
  25. GABAPENTIN [Concomitant]
  26. CEFEPOME (CEFEPIME) [Concomitant]
  27. CYCLOSPORINE [Concomitant]
  28. DOCUSATE SODIUM (DOCUSATE SODIUM) [Concomitant]
  29. LIDOCAINE [Concomitant]
  30. VANCOMYCIN [Concomitant]
  31. OXYMETAZOLINE (OXYMETAZOLINE) [Concomitant]
  32. TRIMETHOPRIM + SULFAMETHOXAZOLE [Concomitant]
  33. LEVOFLOXACIN [Concomitant]
  34. CARVEDILOL [Concomitant]
  35. CITALOPRAM HYDROBROMIDE [Concomitant]
  36. MICAFUNGIN (MICAFUNGIN) [Concomitant]
  37. PREDNISONE (PREDINSONE) [Concomitant]
  38. URSODIOL [Concomitant]
  39. VALGANCICLOVIR HCL [Concomitant]
  40. VALSARTAN [Concomitant]

REACTIONS (10)
  - ACUTE GRAFT VERSUS HOST DISEASE IN SKIN [None]
  - ASTHENIA [None]
  - BLOOD CREATININE INCREASED [None]
  - CYTOMEGALOVIRUS VIRAEMIA [None]
  - HYPOTENSION [None]
  - MALIGNANT NEOPLASM PROGRESSION [None]
  - MENTAL STATUS CHANGES [None]
  - PLASMACYTOMA [None]
  - PNEUMONIA [None]
  - TREMOR [None]
